FAERS Safety Report 8220881-3 (Version None)
Quarter: 2012Q1

REPORT INFORMATION
  Report Type: 
  Country: None (occurrence: None)
  Receive Date: 20120320
  Receipt Date: 20120307
  Transmission Date: 20120608
  Serious: Yes (Other)
  Sender: FDA-Public Use
  Company Number: US-MYLANLABS-2011S1023080

PATIENT
  Age: 42 Year
  Sex: Female
  Weight: 77.1 kg

DRUGS (2)
  1. PROCHLORPERAZINE MALEATE [Suspect]
     Indication: NAUSEA
     Route: 048
     Dates: start: 20111017, end: 20111024
  2. PROCHLORPERAZINE MALEATE [Suspect]
     Indication: HEADACHE
     Route: 048
     Dates: start: 20111017, end: 20111024

REACTIONS (8)
  - DYSPHAGIA [None]
  - DYSPHONIA [None]
  - MUSCULAR WEAKNESS [None]
  - VIITH NERVE PARALYSIS [None]
  - HYPOAESTHESIA [None]
  - AMNESIA [None]
  - HYPERSENSITIVITY [None]
  - DYSTONIA [None]
